FAERS Safety Report 25104861 (Version 1)
Quarter: 2025Q1

REPORT INFORMATION
  Report Type: Spontaneous
  Country: US (occurrence: US)
  Receive Date: 20250321
  Receipt Date: 20250321
  Transmission Date: 20250408
  Serious: No
  Sender: GLAND PHARMA LTD
  Company Number: US-GLANDPHARMA-US-2025GLNSPO00654

PATIENT

DRUGS (1)
  1. DOCETAXEL [Suspect]
     Active Substance: DOCETAXEL
     Indication: Product used for unknown indication
     Route: 065

REACTIONS (6)
  - Bone pain [Unknown]
  - Feeling abnormal [Unknown]
  - Asthenia [Unknown]
  - Myalgia [Unknown]
  - Taste disorder [Unknown]
  - Alopecia [Unknown]
